FAERS Safety Report 12906957 (Version 1)
Quarter: 2016Q4

REPORT INFORMATION
  Report Type: Spontaneous
  Country: BR (occurrence: BR)
  Receive Date: 20161103
  Receipt Date: 20161103
  Transmission Date: 20170207
  Serious: Yes (Hospitalization)
  Sender: FDA-Public Use
  Company Number: BR-PFIZER INC-2016498271

PATIENT
  Age: 70 Year
  Sex: Female
  Weight: 37 kg

DRUGS (1)
  1. LORAX [Suspect]
     Active Substance: LORAZEPAM
     Indication: SLEEP DISORDER THERAPY
     Dosage: UNK
     Dates: start: 2010

REACTIONS (14)
  - Disorientation [Unknown]
  - Tongue discolouration [Unknown]
  - Depressed mood [Unknown]
  - Fear [Unknown]
  - Weight decreased [Unknown]
  - Abdominal discomfort [Unknown]
  - Chronic obstructive pulmonary disease [Unknown]
  - Throat tightness [Unknown]
  - Activities of daily living impaired [Unknown]
  - Visual acuity reduced [Unknown]
  - Product use issue [Unknown]
  - Oxygen saturation decreased [Unknown]
  - Insomnia [Unknown]
  - Poor quality sleep [Unknown]
